FAERS Safety Report 7809203-7 (Version None)
Quarter: 2011Q4

REPORT INFORMATION
  Report Type: 
  Country: None (occurrence: None)
  Receive Date: 20111012
  Receipt Date: 20111004
  Transmission Date: 20120403
  Serious: Yes (Other)
  Sender: FDA-Public Use
  Company Number: FR-JNJFOC-20111003391

PATIENT

DRUGS (10)
  1. VINCRISTINE [Suspect]
     Dosage: ON DAY 1-4 CONTINUOUS INFUSION
     Route: 042
  2. DEXAMETHASONE [Suspect]
     Route: 048
  3. METHOTREXATE [Concomitant]
     Route: 037
  4. DOXORUBICIN HCL [Suspect]
     Indication: ACUTE LYMPHOCYTIC LEUKAEMIA
     Dosage: INFUSED OVER 1 HOUR ON DAY 1
     Route: 042
  5. CYCLOPHOSPHAMIDE [Suspect]
     Indication: ACUTE LYMPHOCYTIC LEUKAEMIA
     Route: 065
  6. VINCRISTINE [Suspect]
     Indication: ACUTE LYMPHOCYTIC LEUKAEMIA
     Dosage: OVER 5 MINUTES ON DAY 1
     Route: 042
  7. PREDNISONE [Concomitant]
     Route: 048
  8. DOXORUBICIN HCL [Suspect]
     Dosage: INFUSED OVER 1 HOUR FROM DAYS 1-4
     Route: 042
  9. HYDROCORTISONE [Concomitant]
     Route: 065
  10. DEXAMETHASONE [Suspect]
     Indication: ACUTE LYMPHOCYTIC LEUKAEMIA
     Route: 048

REACTIONS (1)
  - SYSTEMIC CANDIDA [None]
